FAERS Safety Report 4521992-6 (Version None)
Quarter: 2004Q4

REPORT INFORMATION
  Report Type: 
  Country: None (occurrence: None)
  Receive Date: 20041206
  Receipt Date: 20041122
  Transmission Date: 20050328
  Serious: Yes (Hospitalization)
  Sender: FDA-Public Use
  Company Number: 2004213091US

PATIENT
  Age: 61 Year
  Sex: Male

DRUGS (2)
  1. IRINOTECAN HCL [Suspect]
     Indication: METASTATIC RENAL CELL CARCINOMA
     Dosage: 100 MG/M*2 (100 MG/M*2, CYCLIC), INTRAVENOUS
     Route: 042
     Dates: start: 20040204, end: 20040324
  2. GEMCITABINE HYDROCHLORIDE (GEMCITABINE HYDROCHLORIDE) [Suspect]
     Indication: METASTATIC RENAL CELL CARCINOMA
     Dosage: 1000 MG/M2*2 (1000 MG/M2*2, CYCLIC), INTRAVENOUS
     Route: 042
     Dates: start: 20040204, end: 20040324

REACTIONS (3)
  - NOSOCOMIAL INFECTION [None]
  - PNEUMONIA [None]
  - RADIATION PNEUMONITIS [None]
